FAERS Safety Report 20891646 (Version 2)
Quarter: 2022Q3

REPORT INFORMATION
  Report Type: Spontaneous
  Country: US (occurrence: US)
  Receive Date: 20220530
  Receipt Date: 20220820
  Transmission Date: 20221027
  Serious: Yes (Other)
  Sender: FDA-Public Use
  Company Number: US-TEVA-2022-US-2040400

PATIENT
  Age: 72 Year
  Sex: Female

DRUGS (3)
  1. PROAIR HFA [Suspect]
     Active Substance: ALBUTEROL SULFATE
     Indication: Product used for unknown indication
     Route: 065
  2. QVAR REDIHALER [Suspect]
     Active Substance: BECLOMETHASONE DIPROPIONATE
     Indication: Product used for unknown indication
     Route: 065
  3. COMBIVENT [Concomitant]
     Active Substance: ALBUTEROL SULFATE\IPRATROPIUM BROMIDE
     Indication: Product used for unknown indication

REACTIONS (8)
  - Disability [Unknown]
  - Blindness unilateral [Unknown]
  - Macular opacity [Unknown]
  - Dyspnoea [Unknown]
  - Visual impairment [Unknown]
  - Movement disorder [Unknown]
  - Anxiety [Unknown]
  - Insomnia [Unknown]
